FAERS Safety Report 9175415 (Version 1)
Quarter: 2013Q1

REPORT INFORMATION
  Report Type: Spontaneous
  Country: US (occurrence: US)
  Receive Date: 20130320
  Receipt Date: 20130320
  Transmission Date: 20140127
  Serious: No
  Sender: FDA-Public Use
  Company Number: US-B.I. PHARMACEUTICALS,INC./RIDGEFIELD-2013-BI-06912BP

PATIENT
  Age: 75 Year
  Sex: Female
  Weight: 53 kg

DRUGS (1)
  1. SPIRIVA [Suspect]
     Indication: CHRONIC OBSTRUCTIVE PULMONARY DISEASE
     Route: 055
     Dates: start: 20130201

REACTIONS (2)
  - Swollen tongue [Not Recovered/Not Resolved]
  - Nasal congestion [Not Recovered/Not Resolved]
